FAERS Safety Report 9350425 (Version 5)
Quarter: 2013Q4

REPORT INFORMATION
  Report Type: Spontaneous
  Country: US (occurrence: US)
  Receive Date: 20130617
  Receipt Date: 20131028
  Transmission Date: 20140711
  Serious: Yes (Hospitalization)
  Sender: FDA-Public Use
  Company Number: US-PFIZER INC-2013178401

PATIENT
  Age: 72 Year
  Sex: Female
  Weight: 60.32 kg

DRUGS (6)
  1. SUTENT [Suspect]
     Indication: NEOPLASM MALIGNANT
     Dosage: 50 MG, CYCLIC (28 DAYS ON FOLLOWED BY 1 DAY OFF)
     Dates: end: 20131012
  2. LIPITOR [Concomitant]
     Dosage: UNK
  3. GABAPENTIN [Concomitant]
     Dosage: UNK
  4. VITAMIN C [Concomitant]
     Dosage: UNK
  5. CALCIUM WITH VITAMIN D [Concomitant]
     Dosage: UNK
  6. LOMOTIL [Concomitant]
     Dosage: UNK, AS NEEDED

REACTIONS (11)
  - Diarrhoea [Unknown]
  - Nausea [Unknown]
  - Vomiting [Unknown]
  - Dehydration [Unknown]
  - Disease progression [Not Recovered/Not Resolved]
  - Neoplasm malignant [Not Recovered/Not Resolved]
  - Dysgeusia [Not Recovered/Not Resolved]
  - Asthenia [Not Recovered/Not Resolved]
  - Abdominal discomfort [Unknown]
  - Decreased appetite [Unknown]
  - Malaise [Unknown]
